FAERS Safety Report 4319074-1 (Version None)
Quarter: 2004Q1

REPORT INFORMATION
  Report Type: 
  Country: None (occurrence: None)
  Receive Date: 20040318
  Receipt Date: 20040318
  Transmission Date: 20041129
  Serious: Yes (Other)
  Sender: FDA-Public Use
  Company Number: None

PATIENT
  Sex: Male
  Weight: 88.4514 kg

DRUGS (2)
  1. LEVAQUIN [Suspect]
     Indication: PROSTATITIS
     Dosage: 30 DAY 1 DAILY ORAL
     Route: 048
  2. NEURONTIN [Concomitant]

REACTIONS (4)
  - NERVE INJURY [None]
  - PAIN [None]
  - PARAESTHESIA [None]
  - SWELLING [None]
